FAERS Safety Report 25526967 (Version 1)
Quarter: 2025Q3

REPORT INFORMATION
  Report Type: Spontaneous
  Country: EU (occurrence: EU)
  Receive Date: 20250707
  Receipt Date: 20250707
  Transmission Date: 20251021
  Serious: Yes (Hospitalization)
  Sender: AIRGAS
  Company Number: EU-AFSSAPS-AVBX2025000472

PATIENT
  Sex: Male

DRUGS (2)
  1. NITROUS OXIDE [Suspect]
     Active Substance: NITROUS OXIDE
     Indication: Product used for unknown indication
  2. CODEINE [Suspect]
     Active Substance: CODEINE

REACTIONS (2)
  - Hypercapnic coma [Recovered/Resolved]
  - Bronchopneumopathy [Recovered/Resolved]

NARRATIVE: CASE EVENT DATE: 20250521
